FAERS Safety Report 12982404 (Version 1)
Quarter: 2016Q4

REPORT INFORMATION
  Report Type: Spontaneous
  Country: US (occurrence: US)
  Receive Date: 20161128
  Receipt Date: 20161128
  Transmission Date: 20170207
  Serious: Yes (Disabling, Other)
  Sender: FDA-Public Use
  Company Number: None

PATIENT
  Age: 27 Year
  Sex: Female
  Weight: 97.61 kg

DRUGS (1)
  1. MIRENA [Suspect]
     Active Substance: LEVONORGESTREL
     Indication: CONTRACEPTION
     Dosage: CONSTANT/DAILY VAGINAL
     Route: 067

REACTIONS (4)
  - Bladder pain [None]
  - Urinary incontinence [None]
  - Post procedural complication [None]
  - Micturition urgency [None]

NARRATIVE: CASE EVENT DATE: 20151210
